FAERS Safety Report 8023477-1 (Version None)
Quarter: 2012Q1

REPORT INFORMATION
  Report Type: 
  Country: None (occurrence: None)
  Receive Date: 20120105
  Receipt Date: 20111227
  Transmission Date: 20120608
  Serious: No
  Sender: FDA-Public Use
  Company Number: US-BIOGENIDEC-2011BI006122

PATIENT
  Sex: Female

DRUGS (1)
  1. TYSABRI [Suspect]
     Indication: MULTIPLE SCLEROSIS
     Route: 042
     Dates: start: 20090720

REACTIONS (6)
  - FATIGUE [None]
  - BALANCE DISORDER [None]
  - HEADACHE [None]
  - HYPOAESTHESIA [None]
  - COORDINATION ABNORMAL [None]
  - DIZZINESS [None]
